FAERS Safety Report 4425966-5 (Version None)
Quarter: 2004Q3

REPORT INFORMATION
  Report Type: 
  Country: None (occurrence: None)
  Receive Date: 20040812
  Receipt Date: 20040803
  Transmission Date: 20050211
  Serious: Yes (Death)
  Sender: FDA-Public Use
  Company Number: 04-08-1137

PATIENT
  Age: 85 Year
  Sex: Female

DRUGS (1)
  1. CLOZAPINE [Suspect]
     Dosage: 112-5-125MG Q ORAL
     Route: 048
     Dates: start: 20030201, end: 20040701

REACTIONS (1)
  - CARDIO-RESPIRATORY ARREST [None]
